FAERS Safety Report 13584068 (Version 1)
Quarter: 2017Q2

REPORT INFORMATION
  Report Type: Report from Study
  Country: None (occurrence: MX)
  Receive Date: 20170526
  Receipt Date: 20170526
  Transmission Date: 20170830
  Serious: Yes (Hospitalization, Other)
  Sender: FDA-Public Use
  Company Number: MX-ABBVIE-17K-107-1867817-00

PATIENT
  Age: 51 Year
  Sex: Female
  Weight: 90 kg

DRUGS (2)
  1. HUMIRA [Suspect]
     Active Substance: ADALIMUMAB
     Indication: ANKYLOSING SPONDYLITIS
     Route: 058
     Dates: start: 20151215
  2. HUMIRA [Suspect]
     Active Substance: ADALIMUMAB
     Route: 058

REACTIONS (2)
  - Cyst [Recovering/Resolving]
  - Cyst [Recovered/Resolved]

NARRATIVE: CASE EVENT DATE: 201702
